FAERS Safety Report 17684283 (Version 1)
Quarter: 2020Q2

REPORT INFORMATION
  Report Type: Spontaneous
  Country: GR (occurrence: GR)
  Receive Date: 20200420
  Receipt Date: 20200420
  Transmission Date: 20200714
  Serious: Yes (Other)
  Sender: FDA-Public Use
  Company Number: GR-SA-2020SA097627

PATIENT
  Age: 59 Year
  Sex: Female

DRUGS (1)
  1. ENOXAPARIN SODIUM. [Suspect]
     Active Substance: ENOXAPARIN SODIUM
     Indication: RETINAL ARTERY OCCLUSION
     Dosage: UNK

REACTIONS (1)
  - Skin lesion [Recovered/Resolved]
